FAERS Safety Report 19890011 (Version 1)
Quarter: 2021Q3

REPORT INFORMATION
  Report Type: Spontaneous
  Country: GB (occurrence: GB)
  Receive Date: 20210928
  Receipt Date: 20210928
  Transmission Date: 20211014
  Serious: Yes (Other)
  Sender: FDA-Public Use
  Company Number: GB-ACCORD-239796

PATIENT
  Age: 52 Year
  Sex: Male
  Weight: 96.61 kg

DRUGS (7)
  1. AMLODIPINE [Concomitant]
     Active Substance: AMLODIPINE BESYLATE
     Indication: ILL-DEFINED DISORDER
  2. SERTRALINE/SERTRALINE HYDROCHLORIDE [Concomitant]
     Active Substance: SERTRALINE HYDROCHLORIDE
     Indication: ILL-DEFINED DISORDER
  3. INDAPAMIDE/INDAPAMIDE HEMIHYDRATE [Concomitant]
     Active Substance: INDAPAMIDE
     Indication: ILL-DEFINED DISORDER
  4. EZETIMIBE. [Concomitant]
     Active Substance: EZETIMIBE
     Indication: ILL-DEFINED DISORDER
  5. APIXABAN [Suspect]
     Active Substance: APIXABAN
     Indication: PULMONARY EMBOLISM
     Dosage: 10 MG PER DAY (2 * 5MG DOSES)
     Route: 048
     Dates: start: 20210405
  6. ROSUVASTATIN/ROSUVASTATIN CALCIUM [Concomitant]
     Active Substance: ROSUVASTATIN CALCIUM
     Indication: ILL-DEFINED DISORDER
  7. OMEPRAZOLE/OMEPRAZOLE MAGNESIUM/OMEPRAZOLE SODIUM [Concomitant]
     Active Substance: OMEPRAZOLE
     Indication: ILL-DEFINED DISORDER

REACTIONS (1)
  - Confusional state [Not Recovered/Not Resolved]

NARRATIVE: CASE EVENT DATE: 20210501
